FAERS Safety Report 16669950 (Version 1)
Quarter: 2019Q3

REPORT INFORMATION
  Report Type: Spontaneous
  Country: NO (occurrence: NO)
  Receive Date: 20190805
  Receipt Date: 20190805
  Transmission Date: 20191004
  Serious: Yes (Hospitalization, Disabling, Other)
  Sender: FDA-Public Use
  Company Number: NO-MYLANLABS-2019M1072579

PATIENT
  Age: 69 Year
  Sex: Male

DRUGS (4)
  1. TRAMADOL. [Suspect]
     Active Substance: TRAMADOL
     Indication: PRODUCT USED FOR UNKNOWN INDICATION
     Dosage: UNK
     Route: 065
  2. PARALGIN FORTE                     /00116401/ [Concomitant]
     Dosage: UNK
     Dates: end: 2000
  3. VIVAL [Concomitant]
     Active Substance: DIAZEPAM
     Indication: RESPIRATION ABNORMAL
     Dosage: UNK
     Dates: end: 2000
  4. MOGADON [Concomitant]
     Active Substance: NITRAZEPAM
     Indication: SLEEP DISORDER
     Dosage: UNK
     Dates: end: 2000

REACTIONS (6)
  - Malaise [Unknown]
  - Disability [Unknown]
  - Drug dependence [Unknown]
  - Product administration interrupted [Unknown]
  - Drug withdrawal syndrome [Unknown]
  - Feeling abnormal [Unknown]
